FAERS Safety Report 23849841 (Version 2)
Quarter: 2024Q2

REPORT INFORMATION
  Report Type: Report from Study
  Country: US (occurrence: US)
  Receive Date: 20240513
  Receipt Date: 20240624
  Transmission Date: 20240716
  Serious: Yes (Other)
  Sender: FDA-Public Use
  Company Number: US-ALNYLAM PHARMACEUTICALS, INC.-ALN-2024-002548

PATIENT

DRUGS (2)
  1. GIVLAARI [Suspect]
     Active Substance: GIVOSIRAN SODIUM
     Indication: Porphyria
     Dosage: 281.80 MILLIGRAM (189 MG/ML VIALS), MONTHLY
     Route: 058
     Dates: start: 20240213, end: 20240213
  2. GIVLAARI [Suspect]
     Active Substance: GIVOSIRAN SODIUM
     Dosage: 281.80 MILLIGRAM (189 MG/ML VIALS), MONTHLY
     Route: 058
     Dates: start: 20240503, end: 20240503

REACTIONS (4)
  - Gallbladder enlargement [Unknown]
  - Cholecystectomy [Unknown]
  - Gallbladder polyp [Unknown]
  - Intentional dose omission [Unknown]

NARRATIVE: CASE EVENT DATE: 20240101
